FAERS Safety Report 4804901-1 (Version None)
Quarter: 2005Q4

REPORT INFORMATION
  Report Type: 
  Country: None (occurrence: None)
  Receive Date: 20051017
  Receipt Date: 20050930
  Transmission Date: 20060501
  Serious: Yes (Other)
  Sender: FDA-Public Use
  Company Number: S05-GER-03775-01

PATIENT
  Age: 39 Year
  Sex: Female

DRUGS (14)
  1. CIPRALEX (ESCITALOPRAM) [Suspect]
     Indication: DEPRESSION
     Dosage: 15 MG QD PO
     Route: 048
     Dates: start: 20050728
  2. CIPRALEX (ESCITALOPRAM) [Suspect]
     Indication: PSYCHOTIC DISORDER
     Dosage: 15 MG QD PO
     Route: 048
     Dates: start: 20050728
  3. CIPRALEX (ESCITALOPRAM) [Suspect]
     Indication: DEPRESSION
     Dosage: 10 MG QD PO
     Route: 048
     Dates: start: 20050619, end: 20050627
  4. CIPRALEX (ESCITALOPRAM) [Suspect]
     Indication: PSYCHOTIC DISORDER
     Dosage: 10 MG QD PO
     Route: 048
     Dates: start: 20050619, end: 20050627
  5. CIPRALEX (ESCITALOPRAM) [Suspect]
     Indication: DEPRESSION
     Dosage: 5 MG QD PO
     Route: 048
     Dates: start: 20050614, end: 20050618
  6. CIPRALEX (ESCITALOPRAM) [Suspect]
     Indication: PSYCHOTIC DISORDER
     Dosage: 5 MG QD PO
     Route: 048
     Dates: start: 20050614, end: 20050618
  7. SEROQUEL [Suspect]
     Indication: MANIA
     Dosage: 50 MG QD
     Dates: start: 20050629
  8. SEROQUEL [Suspect]
     Indication: PSYCHOTIC DISORDER
     Dosage: 50 MG QD
     Dates: start: 20050629
  9. SEROQUEL [Suspect]
     Indication: MANIA
     Dosage: 100 MG QD
     Dates: start: 20050601, end: 20050628
  10. SEROQUEL [Suspect]
     Indication: PSYCHOTIC DISORDER
     Dosage: 100 MG QD
     Dates: start: 20050601, end: 20050628
  11. SEROQUEL [Suspect]
     Indication: MANIA
     Dosage: 250 MG QD
     Dates: start: 20050225, end: 20050531
  12. SEROQUEL [Suspect]
     Indication: PSYCHOTIC DISORDER
     Dosage: 250 MG QD
     Dates: start: 20050225, end: 20050531
  13. SEROQUEL [Suspect]
     Indication: MANIA
     Dosage: 400 MG QD
     Dates: end: 20050524
  14. SEROQUEL [Suspect]
     Indication: PSYCHOTIC DISORDER
     Dosage: 400 MG QD
     Dates: end: 20050524

REACTIONS (3)
  - ABORTION MISSED [None]
  - DRUG EXPOSURE DURING PREGNANCY [None]
  - INTRA-UTERINE DEATH [None]
